FAERS Safety Report 12080861 (Version 4)
Quarter: 2016Q3

REPORT INFORMATION
  Report Type: Spontaneous
  Country: US (occurrence: US)
  Receive Date: 20160216
  Receipt Date: 20160812
  Transmission Date: 20161109
  Serious: Yes (Hospitalization, Other)
  Sender: FDA-Public Use
  Company Number: US-BAYER-2016-029653

PATIENT
  Age: 27 Year
  Sex: Female
  Weight: 52.15 kg

DRUGS (3)
  1. TYLENOL WITH CODEIN [CAFFEINE,CODEINE PHOSPHATE,PARACETAMOL] [Concomitant]
  2. MIRENA [Suspect]
     Active Substance: LEVONORGESTREL
     Dosage: 20 MCG/24HR, CONT
     Route: 015
     Dates: start: 20150203, end: 20150727
  3. KEFLEX [Concomitant]
     Active Substance: CEPHALEXIN

REACTIONS (12)
  - Post procedural haemorrhage [None]
  - Fear of disease [None]
  - Procedural pain [None]
  - Abdominal pain lower [None]
  - Uterine perforation [None]
  - Post procedural haemorrhage [None]
  - Depression [None]
  - Sexual aversion disorder [None]
  - Anxiety [None]
  - Stress [None]
  - Abdominal pain [None]
  - Device issue [None]

NARRATIVE: CASE EVENT DATE: 201502
